FAERS Safety Report 18457184 (Version 5)
Quarter: 2021Q3

REPORT INFORMATION
  Report Type: Spontaneous
  Country: US (occurrence: US)
  Receive Date: 20201103
  Receipt Date: 20210731
  Transmission Date: 20211014
  Serious: Yes (Other)
  Sender: FDA-Public Use
  Company Number: NVSC2020US288544

PATIENT
  Age: 47 Year
  Sex: Female
  Weight: 59.86 kg

DRUGS (3)
  1. COMBIPATCH [Suspect]
     Active Substance: ESTRADIOL\NORETHINDRONE ACETATE
     Indication: MENOPAUSAL SYMPTOMS
     Dosage: UNK, (0.05/0.14MG)
     Route: 062
     Dates: start: 2020
  2. KLONOPIN [Concomitant]
     Active Substance: CLONAZEPAM
     Indication: SLEEP DISORDER
     Dosage: 1 G (2?3 TIMES A WEEK)
     Route: 065
  3. KLONOPIN [Concomitant]
     Active Substance: CLONAZEPAM
     Indication: ANXIETY
     Dosage: 1 MG (2?3 TIMES A WEEK)
     Route: 065
     Dates: start: 2019

REACTIONS (7)
  - Application site hypersensitivity [Not Recovered/Not Resolved]
  - Device placement issue [Not Recovered/Not Resolved]
  - Application site erythema [Not Recovered/Not Resolved]
  - Haemorrhage [Not Recovered/Not Resolved]
  - Adhesive tape use [Not Recovered/Not Resolved]
  - Off label use [Not Recovered/Not Resolved]
  - Product adhesion issue [Not Recovered/Not Resolved]

NARRATIVE: CASE EVENT DATE: 2020
